FAERS Safety Report 4639122-9 (Version None)
Quarter: 2005Q2

REPORT INFORMATION
  Report Type: 
  Country: None (occurrence: None)
  Receive Date: 20050419
  Receipt Date: 20011224
  Transmission Date: 20051028
  Serious: Yes (Death, Hospitalization)
  Sender: FDA-Public Use
  Company Number: PHFR2001GB03506

PATIENT
  Age: 34 Year
  Sex: Male
  Weight: 80 kg

DRUGS (5)
  1. DIAZEPAM [Concomitant]
     Indication: PSYCHOTIC DISORDER
     Dosage: 4MG/DAY
     Route: 048
     Dates: start: 20011003, end: 20011118
  2. OLANZAPINE [Concomitant]
     Indication: PSYCHOTIC DISORDER
     Dosage: 20MG/DAY REDUCING TO ZERO
     Route: 048
     Dates: start: 20010806, end: 20011113
  3. LANSOPRAZOLE [Concomitant]
     Indication: GASTRITIS
     Dosage: 30MG/DAY
     Route: 048
     Dates: start: 20011024, end: 20011118
  4. CLOZARIL [Suspect]
     Indication: SCHIZOPHRENIA
     Dosage: 12.5MG/DAY
     Route: 048
     Dates: start: 20011024
  5. CLOZARIL [Suspect]
     Dosage: 200MG/DAY
     Route: 048
     Dates: start: 20011115, end: 20011118

REACTIONS (6)
  - COLITIS ULCERATIVE [None]
  - INTESTINAL ISCHAEMIA [None]
  - INTESTINAL OBSTRUCTION [None]
  - MULTI-ORGAN FAILURE [None]
  - NECROTISING COLITIS [None]
  - SEPSIS [None]
